FAERS Safety Report 18350265 (Version 2)
Quarter: 2020Q4

REPORT INFORMATION
  Report Type: Spontaneous
  Country: US (occurrence: US)
  Receive Date: 20201006
  Receipt Date: 20201105
  Transmission Date: 20210114
  Serious: No
  Sender: FDA-Public Use
  Company Number: US-BAYER-2020-215203

PATIENT
  Age: 22 Year
  Sex: Female

DRUGS (1)
  1. KYLEENA [Suspect]
     Active Substance: LEVONORGESTREL
     Indication: CONTRACEPTION
     Dosage: 17.5 ?G PER DAY, CONTINUOUSLY
     Route: 015
     Dates: start: 20200812

REACTIONS (1)
  - Device expulsion [Not Recovered/Not Resolved]

NARRATIVE: CASE EVENT DATE: 20200909
